FAERS Safety Report 5708907-X (Version None)
Quarter: 2008Q2

REPORT INFORMATION
  Report Type: 
  Country: None (occurrence: None)
  Receive Date: 20080416
  Receipt Date: 20080331
  Transmission Date: 20081010
  Serious: No
  Sender: FDA-Public Use
  Company Number: TPA2008A00419

PATIENT
  Age: 47 Year
  Sex: Female
  Weight: 117.9352 kg

DRUGS (8)
  1. ROZEREM [Suspect]
     Indication: INITIAL INSOMNIA
     Dosage: 8 MG, QHS, PER ORAL : 16 MG, QHS, PER ORAL
     Route: 048
     Dates: start: 20070101, end: 20080323
  2. ROZEREM [Suspect]
     Indication: MIDDLE INSOMNIA
     Dosage: 8 MG, QHS, PER ORAL : 16 MG, QHS, PER ORAL
     Route: 048
     Dates: start: 20070101, end: 20080323
  3. ROZEREM [Suspect]
     Indication: INITIAL INSOMNIA
     Dosage: 8 MG, QHS, PER ORAL : 16 MG, QHS, PER ORAL
     Route: 048
     Dates: start: 20080324
  4. ROZEREM [Suspect]
     Indication: MIDDLE INSOMNIA
     Dosage: 8 MG, QHS, PER ORAL : 16 MG, QHS, PER ORAL
     Route: 048
     Dates: start: 20080324
  5. OXYCODONE HCL [Concomitant]
  6. ASPIRIN [Concomitant]
  7. MANNACLEANSE (ALL OTHER THERAPEUTIC PRODUCTS) [Concomitant]
  8. MILK THISTLE (ALL OTHER THERAPEUTIC PRODUCTS) [Concomitant]

REACTIONS (3)
  - FIBROMYALGIA [None]
  - HEPATIC ENZYME INCREASED [None]
  - MIDDLE INSOMNIA [None]
